FAERS Safety Report 4392166-7 (Version None)
Quarter: 2004Q3

REPORT INFORMATION
  Report Type: 
  Country: None (occurrence: None)
  Receive Date: 20040702
  Receipt Date: 20040329
  Transmission Date: 20050211
  Serious: Yes (Other)
  Sender: FDA-Public Use
  Company Number: 2004UW06153

PATIENT
  Sex: Male

DRUGS (1)
  1. CRESTOR [Suspect]
     Indication: HYPERCHOLESTEROLAEMIA
     Dosage: 10 MG QD; PO
     Route: 048
     Dates: start: 20040101, end: 20040306

REACTIONS (3)
  - MUSCULAR WEAKNESS [None]
  - PAIN [None]
  - TREMOR [None]
